FAERS Safety Report 17546497 (Version 3)
Quarter: 2020Q2

REPORT INFORMATION
  Report Type: Spontaneous
  Country: GB (occurrence: GB)
  Receive Date: 20200316
  Receipt Date: 20200602
  Transmission Date: 20200713
  Serious: Yes (Other)
  Sender: FDA-Public Use
  Company Number: GB-ALLERGAN-2011461US

PATIENT
  Sex: Male

DRUGS (4)
  1. DEX UNK [Suspect]
     Active Substance: UNSPECIFIED INGREDIENT
     Indication: CYSTOID MACULAR OEDEMA
     Dosage: UNK
     Route: 065
     Dates: start: 201803
  2. TOBRADEX [Suspect]
     Active Substance: DEXAMETHASONE\TOBRAMYCIN
     Indication: VITRECTOMY
     Dosage: UNK
     Route: 065
     Dates: start: 20180517
  3. MAXITROL [Suspect]
     Active Substance: DEXAMETHASONE\NEOMYCIN SULFATE\POLYMYXIN B SULFATE
     Indication: CATARACT
     Dosage: UNK, QD
     Route: 065
     Dates: start: 20161117
  4. KENALOG [Suspect]
     Active Substance: TRIAMCINOLONE ACETONIDE
     Indication: CYSTOID MACULAR OEDEMA
     Dosage: UNK
     Route: 047
     Dates: start: 20170509, end: 20180517

REACTIONS (35)
  - Amnesia [Unknown]
  - Intentional product use issue [Unknown]
  - Uveitis-glaucoma-hyphaema syndrome [Unknown]
  - Blindness unilateral [Unknown]
  - Mental impairment [Unknown]
  - Suicidal ideation [Unknown]
  - Anterior chamber inflammation [Unknown]
  - Glaucoma [Unknown]
  - Hyperglycaemia [Unknown]
  - Depression [Unknown]
  - Myocardial infarction [Unknown]
  - Cellulitis orbital [Unknown]
  - Central vision loss [Unknown]
  - Arrhythmia [Unknown]
  - Adverse event [Unknown]
  - Psychiatric symptom [Unknown]
  - Seizure [Unknown]
  - Uveitis [Unknown]
  - Hypertension [Unknown]
  - Muscle atrophy [Unknown]
  - Headache [Unknown]
  - General physical health deterioration [Unknown]
  - Insomnia [Unknown]
  - Chest pain [Unknown]
  - Intraocular pressure increased [Unknown]
  - Angle closure glaucoma [Unknown]
  - Macular oedema [Unknown]
  - Abdominal distension [Unknown]
  - Muscular weakness [Unknown]
  - Anxiety [Unknown]
  - Cushing^s syndrome [Unknown]
  - Macular fibrosis [Unknown]
  - Fluid retention [Unknown]
  - Conjunctivitis [Unknown]
  - Eye infection [Unknown]

NARRATIVE: CASE EVENT DATE: 20170522
